FAERS Safety Report 12297405 (Version 2)
Quarter: 2016Q2

REPORT INFORMATION
  Report Type: Report from Study
  Country: SE (occurrence: SE)
  Receive Date: 20160422
  Receipt Date: 20160425
  Transmission Date: 20160815
  Serious: Yes (Hospitalization)
  Sender: FDA-Public Use
  Company Number: SE-ABBVIE-16P-150-1600893-00

PATIENT
  Age: 59 Year
  Sex: Female

DRUGS (3)
  1. SINEMET [Concomitant]
     Active Substance: CARBIDOPA\LEVODOPA
     Indication: PARKINSON^S DISEASE
     Dosage: IN THE EVENING
  2. DUODOPA [Suspect]
     Active Substance: CARBIDOPA\LEVODOPA
     Indication: PARKINSON^S DISEASE
     Route: 050
     Dates: start: 20160331
  3. CARBIDOPA/LEVODOPA DAVUR [Concomitant]
     Indication: PARKINSON^S DISEASE
     Dosage: PROLONGED-RELEASE TABLET IN THE EVENING

REACTIONS (7)
  - Stoma site infection [Recovering/Resolving]
  - Abdominal pain [Recovering/Resolving]
  - Drug ineffective [Not Recovered/Not Resolved]
  - Device leakage [Unknown]
  - Device deployment issue [Unknown]
  - Incorrect route of drug administration [Unknown]
  - Insomnia [Not Recovered/Not Resolved]

NARRATIVE: CASE EVENT DATE: 20160331
